FAERS Safety Report 13438358 (Version 4)
Quarter: 2017Q2

REPORT INFORMATION
  Report Type: Spontaneous
  Country: US (occurrence: US)
  Receive Date: 20170413
  Receipt Date: 20170524
  Transmission Date: 20170830
  Serious: Yes (Other)
  Sender: FDA-Public Use
  Company Number: US-BAYER-2017-069284

PATIENT
  Age: 19 Year
  Sex: Female
  Weight: 52.61 kg

DRUGS (1)
  1. MIRENA [Suspect]
     Active Substance: LEVONORGESTREL
     Indication: CONTRACEPTION
     Dosage: 20 MCG/24HR, CONT
     Route: 015
     Dates: start: 201609, end: 20170412

REACTIONS (7)
  - Device difficult to use [None]
  - Post procedural haemorrhage [Recovered/Resolved]
  - Device physical property issue [None]
  - Device difficult to use [None]
  - Abdominal pain [Recovered/Resolved]
  - Uterine perforation [Recovered/Resolved]
  - Wrong technique in product usage process [None]

NARRATIVE: CASE EVENT DATE: 20170331
